FAERS Safety Report 14977871 (Version 1)
Quarter: 2018Q2

REPORT INFORMATION
  Report Type: Spontaneous
  Country: US (occurrence: US)
  Receive Date: 20180515
  Receipt Date: 20180515
  Transmission Date: 20180711
  Serious: No
  Sender: FDA-Public Use
  Company Number: None

PATIENT
  Age: 23 Year
  Sex: Female
  Weight: 65.25 kg

DRUGS (3)
  1. FININCA [Concomitant]
  2. FABIOR [Suspect]
     Active Substance: TAZAROTENE
     Indication: ACNE
     Dosage: QUANTITY:50 1 GM; AT BEDTIME?
     Route: 061
     Dates: start: 20180502, end: 20180515
  3. ACEZONE [Concomitant]

REACTIONS (4)
  - Application site discolouration [None]
  - Dry skin [None]
  - Fear [None]
  - Condition aggravated [None]

NARRATIVE: CASE EVENT DATE: 20180510
